FAERS Safety Report 4423822-X (Version None)
Quarter: 2004Q3

REPORT INFORMATION
  Report Type: 
  Country: None (occurrence: None)
  Receive Date: 20040715
  Receipt Date: 20030728
  Transmission Date: 20050211
  Serious: Yes (Hospitalization)
  Sender: FDA-Public Use
  Company Number: HQWYE465131JUL03

PATIENT
  Age: 68 Year
  Sex: Male

DRUGS (1)
  1. MYLOTARG [Suspect]
     Indication: ACUTE MYELOID LEUKAEMIA
     Dosage: 9 MG/M~2 1X PER 1 DAY, INTRAVENOUS
     Route: 042
     Dates: start: 20030707, end: 20030707

REACTIONS (2)
  - FEBRILE NEUTROPENIA [None]
  - INFECTION [None]
